FAERS Safety Report 16019825 (Version 2)
Quarter: 2020Q3

REPORT INFORMATION
  Report Type: Spontaneous
  Country: US (occurrence: US)
  Receive Date: 20190228
  Receipt Date: 20200831
  Transmission Date: 20201102
  Serious: Yes (Death, Hospitalization, Other)
  Sender: FDA-Public Use
  Company Number: US-ASTRAZENECA-2019SE30659

PATIENT
  Age: 19779 Day
  Sex: Male
  Weight: 81.2 kg

DRUGS (35)
  1. DEXILANT [Suspect]
     Active Substance: DEXLANSOPRAZOLE
     Indication: ABDOMINAL DISCOMFORT
     Dosage: 60.0MG UNKNOWN
     Route: 065
     Dates: start: 2009
  2. DEXILANT [Suspect]
     Active Substance: DEXLANSOPRAZOLE
     Indication: ABDOMINAL DISCOMFORT
     Dosage: 60.0MG UNKNOWN
     Route: 065
     Dates: start: 20140419
  3. PREVACID [Suspect]
     Active Substance: LANSOPRAZOLE
     Indication: ABDOMINAL DISCOMFORT
     Dosage: GENERIC30.0MG UNKNOWN
     Route: 065
  4. METOPROLOL. [Concomitant]
     Active Substance: METOPROLOL
     Dates: start: 2014, end: 2016
  5. ZANTAC [Concomitant]
     Active Substance: RANITIDINE HYDROCHLORIDE
     Dates: start: 2018
  6. ZANTAC [Concomitant]
     Active Substance: RANITIDINE HYDROCHLORIDE
     Dates: start: 2018
  7. RANITIDINE. [Concomitant]
     Active Substance: RANITIDINE
  8. PREVACID [Suspect]
     Active Substance: LANSOPRAZOLE
     Indication: ABDOMINAL DISCOMFORT
     Dosage: 30.0MG UNKNOWN
     Route: 065
     Dates: start: 2006, end: 2009
  9. AMLODIPINE [Concomitant]
     Active Substance: AMLODIPINE BESYLATE
     Dates: start: 2014, end: 2016
  10. HYDROCODONE [Concomitant]
     Active Substance: HYDROCODONE
     Dates: start: 2008, end: 2016
  11. ALBUTEROL. [Concomitant]
     Active Substance: ALBUTEROL
  12. TEMAZEPAM. [Concomitant]
     Active Substance: TEMAZEPAM
  13. DIAZEPAM. [Concomitant]
     Active Substance: DIAZEPAM
  14. PRILOSEC [Suspect]
     Active Substance: OMEPRAZOLE MAGNESIUM
     Indication: ABDOMINAL DISCOMFORT
     Dosage: 30.0MG UNKNOWN
     Route: 048
  15. HYDROCODONE [Concomitant]
     Active Substance: HYDROCODONE
  16. METHADONE [Concomitant]
     Active Substance: METHADONE HYDROCHLORIDE
  17. CLONIDINE. [Concomitant]
     Active Substance: CLONIDINE
  18. OXYCODONE/APAP [Concomitant]
     Active Substance: ACETAMINOPHEN\OXYCODONE HYDROCHLORIDE
  19. CLINDAMYCIN. [Concomitant]
     Active Substance: CLINDAMYCIN
  20. ZOLPIDEM [Concomitant]
     Active Substance: ZOLPIDEM TARTRATE
  21. DIOVAN [Concomitant]
     Active Substance: VALSARTAN
  22. DOXYCLINE [Concomitant]
     Active Substance: DOXYCYCLINE
  23. GABAPENTIN. [Concomitant]
     Active Substance: GABAPENTIN
  24. FLOMAX [Concomitant]
     Active Substance: TAMSULOSIN HYDROCHLORIDE
  25. DEXILANT [Suspect]
     Active Substance: DEXLANSOPRAZOLE
     Indication: ABDOMINAL DISCOMFORT
     Dosage: UNKNOWN
     Route: 065
     Dates: start: 2009, end: 2018
  26. PREVACID [Suspect]
     Active Substance: LANSOPRAZOLE
     Indication: ABDOMINAL DISCOMFORT
     Dosage: 30.0MG UNKNOWN
     Route: 065
     Dates: start: 20060926
  27. METOPROLOL. [Concomitant]
     Active Substance: METOPROLOL
     Dates: start: 2014, end: 2016
  28. LOSARTAN. [Concomitant]
     Active Substance: LOSARTAN
  29. PREVACID [Suspect]
     Active Substance: LANSOPRAZOLE
     Indication: ABDOMINAL DISCOMFORT
     Dosage: GENERIC30.0MG UNKNOWN
     Route: 065
     Dates: start: 20091221
  30. DIAZEPAM. [Concomitant]
     Active Substance: DIAZEPAM
  31. LYRICA [Concomitant]
     Active Substance: PREGABALIN
  32. DEXILANT [Suspect]
     Active Substance: DEXLANSOPRAZOLE
     Indication: ABDOMINAL DISCOMFORT
     Dosage: 60.0MG UNKNOWN
     Route: 065
     Dates: start: 20110221
  33. PREVACID [Suspect]
     Active Substance: LANSOPRAZOLE
     Indication: ABDOMINAL DISCOMFORT
     Dosage: GENERIC30.0MG UNKNOWN
     Route: 065
     Dates: start: 20140409
  34. HYDROCODONE [Concomitant]
     Active Substance: HYDROCODONE
     Dates: start: 2008, end: 2016
  35. CRESTOR [Concomitant]
     Active Substance: ROSUVASTATIN CALCIUM

REACTIONS (7)
  - Hyperparathyroidism secondary [Unknown]
  - Renal tubular necrosis [Unknown]
  - Chronic kidney disease [Fatal]
  - Renal failure [Not Recovered/Not Resolved]
  - End stage renal disease [Unknown]
  - Acute kidney injury [Unknown]
  - Nephrogenic anaemia [Unknown]

NARRATIVE: CASE EVENT DATE: 20140415
